FAERS Safety Report 10567804 (Version 2)
Quarter: 2014Q4

REPORT INFORMATION
  Report Type: Spontaneous
  Country: US (occurrence: None)
  Receive Date: 20141104
  Receipt Date: 20141113
  Transmission Date: 20150529
  Serious: Yes (Other)
  Sender: FDA-Public Use
  Company Number: 201410IM007270

PATIENT
  Age: 68 Year
  Sex: Female
  Weight: 90.2 kg

DRUGS (1)
  1. PIRFENIDONE [Suspect]
     Active Substance: PIRFENIDONE
     Indication: IDIOPATHIC PULMONARY FIBROSIS
     Route: 048
     Dates: start: 20140815

REACTIONS (3)
  - Alanine aminotransferase increased [None]
  - Laboratory test abnormal [None]
  - Aspartate aminotransferase increased [None]

NARRATIVE: CASE EVENT DATE: 20141008
